FAERS Safety Report 7343287-8 (Version None)
Quarter: 2011Q1

REPORT INFORMATION
  Report Type: 
  Country: None (occurrence: None)
  Receive Date: 20110310
  Receipt Date: 20110303
  Transmission Date: 20110831
  Serious: Yes (Other)
  Sender: FDA-Public Use
  Company Number: US-PFIZER INC-2010134083

PATIENT
  Sex: Male

DRUGS (1)
  1. XALATAN [Suspect]
     Indication: GLAUCOMA
     Dosage: 1 GTT, QHS OU
     Route: 047
     Dates: start: 20100929

REACTIONS (2)
  - INTRAOCULAR PRESSURE INCREASED [None]
  - MEMORY IMPAIRMENT [None]
